FAERS Safety Report 7802025-2 (Version None)
Quarter: 2011Q4

REPORT INFORMATION
  Report Type: 
  Country: None (occurrence: None)
  Receive Date: 20111007
  Receipt Date: 20111003
  Transmission Date: 20120403
  Serious: Yes (Death, Hospitalization)
  Sender: FDA-Public Use
  Company Number: PHHY2011DO87498

PATIENT
  Age: 88 Year
  Sex: Female

DRUGS (1)
  1. DIOVAN HCT [Suspect]
     Indication: HYPERTENSION
     Dosage: (VALS 160 MG, HYDR 12.5 MG) 1 DF, PER DAY
     Route: 048

REACTIONS (2)
  - DEATH [None]
  - COLON CANCER [None]
